FAERS Safety Report 21314278 (Version 1)
Quarter: 2022Q3

REPORT INFORMATION
  Report Type: Spontaneous
  Country: US (occurrence: None)
  Receive Date: 20220909
  Receipt Date: 20220909
  Transmission Date: 20221027
  Serious: No
  Sender: FDA-Public Use
  Company Number: US-ARIS GLOBAL-202109-1755

PATIENT
  Age: 66 Year
  Sex: Female

DRUGS (1)
  1. OXERVATE [Suspect]
     Active Substance: CENEGERMIN-BKBJ
     Indication: Neurotrophic keratopathy
     Route: 047
     Dates: start: 20210825

REACTIONS (2)
  - Swelling of eyelid [Not Recovered/Not Resolved]
  - Eyelid pain [Not Recovered/Not Resolved]

NARRATIVE: CASE EVENT DATE: 20210925
